FAERS Safety Report 21211686 (Version 1)
Quarter: 2022Q3

REPORT INFORMATION
  Report Type: Spontaneous
  Country: US (occurrence: US)
  Receive Date: 20220815
  Receipt Date: 20220815
  Transmission Date: 20221027
  Serious: Yes (Other)
  Sender: FDA-Public Use
  Company Number: US-VIVUS, Inc.-2022V1000373

PATIENT
  Age: 61 Year
  Sex: Female
  Weight: 67.192 kg

DRUGS (1)
  1. QSYMIA [Suspect]
     Active Substance: PHENTERMINE HYDROCHLORIDE\TOPIRAMATE
     Indication: Weight decreased
     Route: 048

REACTIONS (3)
  - Nephrolithiasis [Unknown]
  - Pollakiuria [Unknown]
  - Thirst [Unknown]
